FAERS Safety Report 5884738-5 (Version None)
Quarter: 2008Q3

REPORT INFORMATION
  Report Type: 
  Country: None (occurrence: None)
  Receive Date: 20080912
  Receipt Date: 20080902
  Transmission Date: 20090109
  Serious: Yes (Hospitalization)
  Sender: FDA-Public Use
  Company Number: 08H-163-0314840-00

PATIENT
  Age: 36 Year
  Sex: Female

DRUGS (5)
  1. A-METHOPRED INJECTION (METHYLPREDNISOLONE SODIUM SUCCINATE) (METHYLPRE [Suspect]
     Indication: SYSTEMIC LUPUS ERYTHEMATOSUS
     Dosage: 1 GM, PER DAY, INTRAVENOUS
     Route: 042
  2. CYCLOPHOSPHAMIDE [Suspect]
     Indication: SYSTEMIC LUPUS ERYTHEMATOSUS
     Dosage: 500 MG/M2, INTRAVENOUS; INTRAVENOUS
  3. PREDNISONE [Suspect]
     Indication: SYSTEMIC LUPUS ERYTHEMATOSUS
     Dosage: 10 MG,
  4. TRIMETHOPRIM/ SULFAMETHOXAZOLE (BACTRIM /00086101/) [Concomitant]
  5. ATOVAQUONE [Concomitant]

REACTIONS (16)
  - ACUTE RESPIRATORY DISTRESS SYNDROME [None]
  - CENTRAL LINE INFECTION [None]
  - CHOLESTASIS [None]
  - DISEASE PROGRESSION [None]
  - DRUG TOLERANCE DECREASED [None]
  - DYSPNOEA [None]
  - FEBRILE NEUTROPENIA [None]
  - FLUID OVERLOAD [None]
  - GLUCOSE-6-PHOSPHATE DEHYDROGENASE DEFICIENCY [None]
  - HAEMODIALYSIS [None]
  - HAEMORRHAGE INTRACRANIAL [None]
  - JAUNDICE CHOLESTATIC [None]
  - LUNG INFILTRATION [None]
  - PNEUMOCYSTIS JIROVECI PNEUMONIA [None]
  - RENAL IMPAIRMENT [None]
  - RESPIRATORY FAILURE [None]
